FAERS Safety Report 8849022 (Version 1)
Quarter: 2012Q4

REPORT INFORMATION
  Report Type: Spontaneous
  Country: US (occurrence: None)
  Receive Date: 20121017
  Receipt Date: 20121017
  Transmission Date: 20130627
  Serious: Yes (Hospitalization)
  Sender: FDA-Public Use
  Company Number: None

PATIENT
  Age: 63 Year
  Sex: Male
  Weight: 82.1 kg

DRUGS (2)
  1. EXJADE [Suspect]
     Dosage: ..  OVERLOAD
     Route: 048
     Dates: start: 20120930, end: 20121010
  2. TRANSFUSIONS [Concomitant]

REACTIONS (2)
  - Pneumonia [None]
  - Renal failure [None]
